FAERS Safety Report 4344396-8 (Version None)
Quarter: 2004Q2

REPORT INFORMATION
  Report Type: 
  Country: None (occurrence: None)
  Receive Date: 20040419
  Receipt Date: 20040402
  Transmission Date: 20050107
  Serious: Yes (Other)
  Sender: FDA-Public Use
  Company Number: DSA_24198_2004

PATIENT
  Sex: Female

DRUGS (5)
  1. DILZEM RR [Suspect]
     Indication: HYPERTONIA
     Dosage: 180 MG Q DAY
     Dates: start: 20040101
  2. ADALAT [Suspect]
  3. SOTALEX [Concomitant]
  4. EUTHYROX [Concomitant]
  5. TRANXILIUM [Concomitant]

REACTIONS (3)
  - DISEASE RECURRENCE [None]
  - HYPOTONIA [None]
  - VISUAL DISTURBANCE [None]
